FAERS Safety Report 13569301 (Version 3)
Quarter: 2017Q2

REPORT INFORMATION
  Report Type: Report from Study
  Country: US (occurrence: US)
  Receive Date: 20170522
  Receipt Date: 20170630
  Transmission Date: 20170830
  Serious: Yes (Death, Hospitalization)
  Sender: FDA-Public Use
  Company Number: PHEH2017US015119

PATIENT
  Age: 58 Year
  Sex: Male
  Weight: 58 kg

DRUGS (3)
  1. PACLITAXEL. [Suspect]
     Active Substance: PACLITAXEL
     Indication: PRODUCT USED FOR UNKNOWN INDICATION
     Dosage: UNK, Q21D
     Route: 042
     Dates: start: 20170504
  2. CARBOPLATIN. [Suspect]
     Active Substance: CARBOPLATIN
     Indication: PRODUCT USED FOR UNKNOWN INDICATION
     Dosage: UNK, Q21D
     Route: 042
  3. ZOMETA [Suspect]
     Active Substance: ZOLEDRONIC ACID
     Indication: PRODUCT USED FOR UNKNOWN INDICATION
     Dosage: UNK, Q28D
     Route: 042
     Dates: start: 20170504

REACTIONS (3)
  - Febrile neutropenia [Fatal]
  - Acute respiratory failure [Fatal]
  - Failure to thrive [Unknown]

NARRATIVE: CASE EVENT DATE: 201705
